FAERS Safety Report 18080489 (Version 2)
Quarter: 2020Q3

REPORT INFORMATION
  Report Type: Spontaneous
  Country: US (occurrence: US)
  Receive Date: 20200728
  Receipt Date: 20200907
  Transmission Date: 20201103
  Serious: Yes (Other)
  Sender: FDA-Public Use
  Company Number: US-SEPTODONT-202005837

PATIENT
  Age: 39 Year
  Sex: Female

DRUGS (1)
  1. QUALA LIDOCAINE (EPINEPHRINE BITARTRATE\LIDOCAINE HYDROCHLORIDE) [Suspect]
     Active Substance: EPINEPHRINE BITARTRATE\LIDOCAINE HYDROCHLORIDE
     Indication: DENTAL LOCAL ANAESTHESIA

REACTIONS (5)
  - Eye movement disorder [Unknown]
  - Seizure [Unknown]
  - Tremor [Unknown]
  - Fatigue [Unknown]
  - Myalgia [Unknown]
